FAERS Safety Report 10572370 (Version 5)
Quarter: 2014Q4

REPORT INFORMATION
  Report Type: Spontaneous
  Country: US (occurrence: US)
  Receive Date: 20141109
  Receipt Date: 20141205
  Transmission Date: 20150529
  Serious: Yes (Other)
  Sender: FDA-Public Use
  Company Number: US-009507513-1411USA000182

PATIENT
  Age: 25 Year
  Sex: Female
  Weight: 73.92 kg

DRUGS (2)
  1. NEXPLANON [Suspect]
     Active Substance: ETONOGESTREL
     Indication: CONTRACEPTION
     Dosage: SECOND ROD
     Route: 059
     Dates: start: 20130926
  2. NEXPLANON [Suspect]
     Active Substance: ETONOGESTREL
     Dosage: FIRST ROD
     Route: 059

REACTIONS (5)
  - Device expulsion [Recovered/Resolved]
  - Unintended pregnancy [Recovered/Resolved]
  - Menstruation irregular [Not Recovered/Not Resolved]
  - Medical device complication [Recovered/Resolved]
  - Abortion induced [Unknown]

NARRATIVE: CASE EVENT DATE: 2014
